FAERS Safety Report 9457992 (Version 2)
Quarter: 2013Q4

REPORT INFORMATION
  Report Type: Spontaneous
  Country: IT (occurrence: None)
  Receive Date: 20130812
  Receipt Date: 20131022
  Transmission Date: 20140711
  Serious: Yes (Hospitalization)
  Sender: FDA-Public Use
  Company Number: AUR-APL-2013-06605

PATIENT
  Age: 12 Year
  Sex: Female

DRUGS (1)
  1. RISPERIDONE [Suspect]
     Indication: MENTAL RETARDATION
     Route: 048
     Dates: start: 20130715, end: 20130715

REACTIONS (2)
  - Loss of consciousness [None]
  - Drug abuse [None]
